FAERS Safety Report 21359165 (Version 1)
Quarter: 2022Q3

REPORT INFORMATION
  Report Type: Spontaneous
  Country: US (occurrence: None)
  Receive Date: 20220920
  Receipt Date: 20220920
  Transmission Date: 20221027
  Serious: Yes (unspecified)
  Sender: FDA-Public Use
  Company Number: None

PATIENT
  Age: 64 Year
  Sex: Male
  Weight: 65.6 kg

DRUGS (4)
  1. PACLITAXEL [Suspect]
     Active Substance: PACLITAXEL
     Indication: Lung neoplasm malignant
     Dosage: OTHER FREQUENCY : ONE TIME TEST DOSE;?
     Route: 040
     Dates: start: 20220920, end: 20220920
  2. EPIPEN [Concomitant]
     Active Substance: EPINEPHRINE
     Dates: start: 20220920, end: 20220920
  3. Hydrocortisone 100 mg IVP [Concomitant]
     Dates: start: 20220920, end: 20220920
  4. Saline infusion [Concomitant]
     Dates: start: 20220920, end: 20220920

REACTIONS (3)
  - Anaphylactic reaction [None]
  - Presyncope [None]
  - Infusion related reaction [None]

NARRATIVE: CASE EVENT DATE: 20220920
